FAERS Safety Report 10175561 (Version 2)
Quarter: 2014Q2

REPORT INFORMATION
  Report Type: Spontaneous
  Country: NL (occurrence: NL)
  Receive Date: 20140516
  Receipt Date: 20140523
  Transmission Date: 20141212
  Serious: Yes (Hospitalization)
  Sender: FDA-Public Use
  Company Number: NL-MERCK-1405NLD006683

PATIENT
  Age: 80 Year
  Sex: Male

DRUGS (1)
  1. EZETROL [Suspect]
     Route: 048

REACTIONS (3)
  - Renal impairment [Recovering/Resolving]
  - Dialysis [Recovering/Resolving]
  - Bronchitis [Recovering/Resolving]
